FAERS Safety Report 19269491 (Version 2)
Quarter: 2021Q2

REPORT INFORMATION
  Report Type: Spontaneous
  Country: US (occurrence: US)
  Receive Date: 20210518
  Receipt Date: 20210602
  Transmission Date: 20210717
  Serious: Yes (Death, Other)
  Sender: FDA-Public Use
  Company Number: US-AMNEAL PHARMACEUTICALS-2021-AMRX-01246

PATIENT
  Sex: Male

DRUGS (1)
  1. RYTARY [Suspect]
     Active Substance: CARBIDOPA\LEVODOPA
     Indication: PARKINSON^S DISEASE
     Dosage: 2 CAPSULES 4?5 TIMES A DAY
     Route: 048
     Dates: start: 2018, end: 202104

REACTIONS (4)
  - Hip fracture [Fatal]
  - Fall [Fatal]
  - Parkinson^s disease [Fatal]
  - Malaise [Unknown]
